FAERS Safety Report 8112512 (Version 2)
Quarter: 2013Q2

REPORT INFORMATION
  Report Type: Spontaneous
  Country: JP (occurrence: JP)
  Receive Date: 20110830
  Receipt Date: 20130403
  Transmission Date: 20140414
  Serious: Yes (Hospitalization, Other)
  Sender: FDA-Public Use
  Company Number: JP-PFIZER INC-2010179215

PATIENT
  Age: 63 Year
  Sex: Female
  Weight: 37.7 kg

DRUGS (2)
  1. LYRICA [Suspect]
     Indication: DIABETIC NEUROPATHY
     Dosage: 50 MG, DAILY
     Route: 048
     Dates: start: 20101022, end: 20101024
  2. LYRICA [Suspect]
     Indication: NEURALGIA
     Dosage: 75 MG, 2X/DAY

REACTIONS (8)
  - Overdose [Recovered/Resolved]
  - Somnolence [Recovered/Resolved]
  - Dizziness [Recovered/Resolved]
  - Asthenia [Recovered/Resolved]
  - Drug level increased [Unknown]
  - Feeling abnormal [Recovered/Resolved]
  - Hypertension [Unknown]
  - Heart rate increased [Unknown]
